FAERS Safety Report 6612096-7 (Version None)
Quarter: 2010Q1

REPORT INFORMATION
  Report Type: 
  Country: None (occurrence: None)
  Receive Date: 20100302
  Receipt Date: 20100302
  Transmission Date: 20100710
  Serious: Yes (Hospitalization)
  Sender: FDA-Public Use
  Company Number: None

PATIENT
  Age: 53 Year
  Sex: Male
  Weight: 114.76 kg

DRUGS (9)
  1. RITUXIMAB [Suspect]
     Indication: ANTIPHOSPHOLIPID SYNDROME
     Dosage: 1000 MG, I.V., 1000 MG. I.V.
     Route: 042
     Dates: start: 20091104
  2. RITUXIMAB [Suspect]
     Indication: ANTIPHOSPHOLIPID SYNDROME
     Dosage: 1000 MG, I.V., 1000 MG. I.V.
     Route: 042
     Dates: start: 20091117
  3. COUMADIN [Concomitant]
  4. JANUVIA [Concomitant]
  5. METFORMIN HYDROCHLORIDE [Concomitant]
  6. HUMALOG [Concomitant]
  7. LIPITOR [Concomitant]
  8. NORVASC [Concomitant]
  9. NICOMIDE [Concomitant]

REACTIONS (2)
  - FALL [None]
  - PARTIAL SEIZURES [None]
